FAERS Safety Report 9465686 (Version 1)
Quarter: 2013Q3

REPORT INFORMATION
  Report Type: Report from Study
  Country: CA (occurrence: CA)
  Receive Date: 20130820
  Receipt Date: 20130820
  Transmission Date: 20140515
  Serious: Yes (Hospitalization, Other)
  Sender: FDA-Public Use
  Company Number: CA-JNJFOC-20130805539

PATIENT
  Age: 51 Year
  Sex: Female
  Weight: 72.2 kg

DRUGS (1)
  1. REMICADE [Suspect]
     Indication: CROHN^S DISEASE
     Route: 042

REACTIONS (4)
  - Hemiplegia [Unknown]
  - Periorbital cellulitis [Unknown]
  - Sinus disorder [Unknown]
  - Orbital decompression [Unknown]
